FAERS Safety Report 6398169-5 (Version None)
Quarter: 2009Q4

REPORT INFORMATION
  Report Type: 
  Country: None (occurrence: None)
  Receive Date: 20091013
  Receipt Date: 20091007
  Transmission Date: 20100525
  Serious: Yes (Hospitalization)
  Sender: FDA-Public Use
  Company Number: JP-BRISTOL-MYERS SQUIBB COMPANY-14628622

PATIENT
  Age: 37 Year
  Sex: Female
  Weight: 40 kg

DRUGS (3)
  1. ERBITUX [Suspect]
     Indication: COLON CANCER
     Dosage: (250 MG/M2(340MG), 1 IN 1 WEEK) 18MAR09 - 8MAY09  RECENT INFUSION 08MAY09 (9 TH)
     Route: 042
     Dates: start: 20090309, end: 20090309
  2. DIPHENHYDRAMINE HCL [Concomitant]
     Indication: PREMEDICATION
     Dosage: TABLET FORM
     Route: 048
     Dates: start: 20090309
  3. DECADRON [Concomitant]
     Indication: PREMEDICATION
     Route: 042
     Dates: start: 20090309

REACTIONS (3)
  - HYPOCALCAEMIA [None]
  - HYPOMAGNESAEMIA [None]
  - TETANY [None]
